FAERS Safety Report 4803652-7 (Version None)
Quarter: 2005Q4

REPORT INFORMATION
  Report Type: 
  Country: None (occurrence: None)
  Receive Date: 20051014
  Receipt Date: 20041116
  Transmission Date: 20060501
  Serious: No
  Sender: FDA-Public Use
  Company Number: 04P-131-0281013-00

PATIENT
  Age: 38 Year
  Sex: Female

DRUGS (3)
  1. KALETRA [Suspect]
     Indication: HIV INFECTION
     Dosage: 400MG/ 100MG TWICE DAILY, PER ORAL; 400 MG/100 MG TWICE DAILY, PER ORAL
     Route: 048
  2. FUZEON [Concomitant]
  3. VIREAD [Concomitant]

REACTIONS (1)
  - RASH [None]
